FAERS Safety Report 19150268 (Version 2)
Quarter: 2021Q3

REPORT INFORMATION
  Report Type: Report from Study
  Country: CA (occurrence: CA)
  Receive Date: 20210418
  Receipt Date: 20210705
  Transmission Date: 20211014
  Serious: Yes (Hospitalization, Other)
  Sender: FDA-Public Use
  Company Number: CA-UCBSA-2021016382

PATIENT
  Age: 72 Year
  Sex: Female

DRUGS (5)
  1. BUSCOPAMINE [Concomitant]
     Indication: KIDNEY INFECTION
     Dosage: UNK
     Dates: start: 20210513
  2. CERTOLIZUMAB PEGOL AUTOCLICKS [Suspect]
     Active Substance: CERTOLIZUMAB PEGOL
     Indication: RHEUMATOID ARTHRITIS
     Dosage: 400 MILLIGRAM, EV 2 WEEKS(QOW)
     Route: 058
     Dates: start: 20210309, end: 202103
  3. KETOROLAC [KETOROLAC TROMETHAMINE] [Concomitant]
     Active Substance: KETOROLAC TROMETHAMINE
     Indication: CYSTITIS
     Dosage: 10 MILLIGRAM, 2X/DAY (BID)
  4. NITROFURANTOIN. [Concomitant]
     Active Substance: NITROFURANTOIN
     Indication: CYSTITIS
     Dosage: 100 MILLIGRAM, 2X/DAY (BID)
  5. CERTOLIZUMAB PEGOL AUTOCLICKS [Suspect]
     Active Substance: CERTOLIZUMAB PEGOL
     Dosage: 400 MILLIGRAM, EV 2 WEEKS(QOW)
     Route: 058
     Dates: start: 2021

REACTIONS (3)
  - Kidney infection [Recovered/Resolved]
  - Fungal infection [Unknown]
  - Cystitis [Unknown]

NARRATIVE: CASE EVENT DATE: 2021
